FAERS Safety Report 9228547 (Version 1)
Quarter: 2013Q2

REPORT INFORMATION
  Report Type: Report from Study
  Country: SE (occurrence: SE)
  Receive Date: 20130412
  Receipt Date: 20130412
  Transmission Date: 20140414
  Serious: Yes (Death, Other)
  Sender: FDA-Public Use
  Company Number: SE-ROCHE-1211182

PATIENT
  Sex: 0

DRUGS (3)
  1. ALTEPLASE [Suspect]
     Indication: PERIPHERAL ISCHAEMIA
     Dosage: BOLUS OF 0.25 MG (2.5 ML) FOLLOWED BY A CONTINUOUS INFUSION OF 0.5 MG/H (5 ML/H)
     Route: 040
  2. ALTEPLASE [Suspect]
     Dosage: FORCED PERIODIC (PULSE-SPRAY) INFUSION IN DOSES OF ABOUT 0.13 MG (0.4 ML) TWICE PER MINUTE (15 MG/H)
     Route: 040
  3. HEPARIN [Suspect]
     Indication: PERIPHERAL ISCHAEMIA
     Dosage: CONTINUOUS INFUSION OF 600 U/H (DURING THROMBOLYSIS)
     Route: 042

REACTIONS (8)
  - Death [Fatal]
  - Haemorrhage [Fatal]
  - Cardiac disorder [Fatal]
  - Haemorrhagic stroke [Fatal]
  - Amputation [Unknown]
  - Drug effect decreased [Unknown]
  - Reocclusion [Unknown]
  - Peripheral embolism [Unknown]
